FAERS Safety Report 7260700-5 (Version None)
Quarter: 2011Q1

REPORT INFORMATION
  Report Type: 
  Country: None (occurrence: None)
  Receive Date: 20110130
  Receipt Date: 20101217
  Transmission Date: 20110831
  Serious: No
  Sender: FDA-Public Use
  Company Number: US-ABBOTT-10P-163-0693012-00

PATIENT
  Sex: Male
  Weight: 59.928 kg

DRUGS (6)
  1. XYREM [Concomitant]
     Indication: NARCOLEPSY
  2. PERCOCET [Concomitant]
     Indication: PAIN
  3. HUMIRA [Suspect]
     Indication: ANKYLOSING SPONDYLITIS
     Dates: start: 20100701
  4. ZYRTEC-D 12 HOUR [Concomitant]
     Indication: HYPERSENSITIVITY
  5. HUMIRA [Suspect]
  6. STEROID INJECTION [Concomitant]
     Indication: ARTHRITIS

REACTIONS (2)
  - BRONCHITIS [None]
  - PSORIATIC ARTHROPATHY [None]
